FAERS Safety Report 5129808-4 (Version None)
Quarter: 2006Q4

REPORT INFORMATION
  Report Type: 
  Country: None (occurrence: None)
  Receive Date: 20061018
  Receipt Date: 20061011
  Transmission Date: 20070319
  Serious: Yes (Other)
  Sender: FDA-Public Use
  Company Number: US-AMGEN-KDL194119

PATIENT
  Sex: Female

DRUGS (13)
  1. SENSIPAR [Suspect]
     Dates: start: 20060830, end: 20060906
  2. PAXIL [Concomitant]
  3. OXYCODONE HCL [Concomitant]
  4. FENTANYL [Concomitant]
     Route: 062
  5. LASIX [Concomitant]
  6. LEUCOVORIN CALCIUM [Concomitant]
  7. NEPHRO-CAPS [Concomitant]
  8. RENAGEL [Concomitant]
  9. ZINC SULFATE [Concomitant]
  10. ATIVAN [Concomitant]
  11. AMITRIPTYLINE HCL [Concomitant]
  12. MIDODRINE HYDROCHLORIDE [Concomitant]
  13. DUONEB [Concomitant]

REACTIONS (6)
  - ARTHRALGIA [None]
  - DECREASED APPETITE [None]
  - GENERAL PHYSICAL HEALTH DETERIORATION [None]
  - HYPERSENSITIVITY [None]
  - SWELLING FACE [None]
  - URTICARIA [None]
